FAERS Safety Report 5045634-9 (Version None)
Quarter: 2006Q3

REPORT INFORMATION
  Report Type: 
  Country: None (occurrence: None)
  Receive Date: 20060707
  Receipt Date: 20060629
  Transmission Date: 20061208
  Serious: Yes (Hospitalization)
  Sender: FDA-Public Use
  Company Number: FR-ABBOTT-06P-056-0337172-00

PATIENT
  Sex: Male

DRUGS (4)
  1. LIPANTHYL [Suspect]
     Indication: HYPERCHOLESTEROLAEMIA
     Route: 048
     Dates: start: 19900101, end: 20060215
  2. ETHANOLAMINE ACETYLLEUCINATE [Concomitant]
     Indication: MENIERE'S DISEASE
  3. SILYMARIN [Concomitant]
     Indication: DRUG USE FOR UNKNOWN INDICATION
  4. ARGININE HYDROCHLORIDE [Concomitant]
     Indication: DRUG USE FOR UNKNOWN INDICATION

REACTIONS (7)
  - ALANINE AMINOTRANSFERASE INCREASED [None]
  - ASPARTATE AMINOTRANSFERASE INCREASED [None]
  - BLOOD UREA INCREASED [None]
  - FALL [None]
  - GAMMA-GLUTAMYLTRANSFERASE ABNORMAL [None]
  - LOSS OF CONSCIOUSNESS [None]
  - MALAISE [None]
